FAERS Safety Report 8348976-4 (Version None)
Quarter: 2012Q2

REPORT INFORMATION
  Report Type: 
  Country: None (occurrence: None)
  Receive Date: 20120508
  Receipt Date: 20120425
  Transmission Date: 20120825
  Serious: Yes (Hospitalization, Other)
  Sender: FDA-Public Use
  Company Number: 2012MA004047

PATIENT
  Age: 49 Year
  Sex: Female

DRUGS (7)
  1. ACETAMINOPHEN [Concomitant]
  2. TRAMADOL HYDROCHLORIDE [Suspect]
     Indication: PAIN
     Dosage: 100 MG; QID; PO
     Route: 048
     Dates: start: 20111203
  3. FLUOXETINE [Suspect]
     Indication: PRODUCT USED FOR UNKNOWN INDICATION
  4. THIAMINE [Concomitant]
  5. FOLIC ACID [Concomitant]
  6. PABRINEX [Concomitant]
  7. MULTI-VITAMIN [Concomitant]

REACTIONS (4)
  - CONVULSION [None]
  - ALCOHOL WITHDRAWAL SYNDROME [None]
  - FEMORAL NECK FRACTURE [None]
  - HYPOGLYCAEMIA [None]
